FAERS Safety Report 7394209-5 (Version None)
Quarter: 2011Q2

REPORT INFORMATION
  Report Type: 
  Country: None (occurrence: None)
  Receive Date: 20110405
  Receipt Date: 20110322
  Transmission Date: 20111010
  Serious: Yes (Hospitalization)
  Sender: FDA-Public Use
  Company Number: US-CELGENEUS-163-21880-11032592

PATIENT
  Sex: Female
  Weight: 39.952 kg

DRUGS (18)
  1. HYDROCODONE [Concomitant]
     Route: 065
  2. VITAMIN D [Concomitant]
     Route: 065
  3. BAYER [Concomitant]
     Route: 065
  4. TRIPLE ANTIBIOTIC OINTMENT [Concomitant]
     Route: 061
  5. CENTRUM [Concomitant]
     Route: 065
  6. MEGACE [Concomitant]
     Route: 065
  7. PROCTOZONE [Concomitant]
     Route: 065
  8. WELCHOL [Concomitant]
     Route: 065
  9. CYPROHEPTAD [Concomitant]
     Route: 065
  10. GARLIC [Concomitant]
     Route: 065
  11. LEVOTHYROXINE SODIUM [Concomitant]
     Route: 065
  12. MULTIVITAMIN [Concomitant]
     Route: 065
  13. REVLIMID [Suspect]
     Indication: MULTIPLE MYELOMA
     Dosage: 25 MILLIGRAM
     Route: 048
     Dates: start: 20110121
  14. POLYETHYLENE GLYCOL [Concomitant]
     Route: 065
  15. BENAZEPRIL HYDROCHLORIDE [Concomitant]
     Route: 065
  16. EVISTA [Concomitant]
     Route: 065
  17. MULTIPLE VITAMIN [Concomitant]
     Route: 065
  18. OSCAL [Concomitant]
     Route: 065

REACTIONS (4)
  - DYSPNOEA [None]
  - FALL [None]
  - HEAD INJURY [None]
  - MALNUTRITION [None]
